FAERS Safety Report 5631853-7 (Version None)
Quarter: 2008Q1

REPORT INFORMATION
  Report Type: 
  Country: None (occurrence: None)
  Receive Date: 20080212
  Receipt Date: 20080130
  Transmission Date: 20080703
  Serious: Yes (Hospitalization)
  Sender: FDA-Public Use
  Company Number: 2008S1000033

PATIENT
  Age: 85 Year
  Sex: Male

DRUGS (1)
  1. ACITRETIN [Suspect]
     Indication: PSORIASIS
     Dosage: PO
     Route: 048

REACTIONS (1)
  - HYPERTENSIVE ENCEPHALOPATHY [None]
